FAERS Safety Report 5168882-6 (Version None)
Quarter: 2006Q4

REPORT INFORMATION
  Report Type: 
  Country: None (occurrence: None)
  Receive Date: 20061201
  Receipt Date: 20061122
  Transmission Date: 20070319
  Serious: Yes (Other)
  Sender: FDA-Public Use
  Company Number: 2006145359

PATIENT
  Age: 48 Year
  Sex: Female

DRUGS (1)
  1. RELPAX [Suspect]

REACTIONS (4)
  - ABASIA [None]
  - ABDOMINAL PAIN [None]
  - ASTHENIA [None]
  - HYPERTENSION [None]
